FAERS Safety Report 14967199 (Version 1)
Quarter: 2018Q2

REPORT INFORMATION
  Report Type: Spontaneous
  Country: JP (occurrence: JP)
  Receive Date: 20180604
  Receipt Date: 20180604
  Transmission Date: 20180711
  Serious: Yes (Other)
  Sender: FDA-Public Use
  Company Number: JP-CHEPLA-C20180312_01

PATIENT
  Age: 35 Year
  Sex: Female

DRUGS (2)
  1. IDARUBICIN [Concomitant]
     Active Substance: IDARUBICIN
     Indication: ACUTE PROMYELOCYTIC LEUKAEMIA
  2. VESANOID [Suspect]
     Active Substance: TRETINOIN
     Indication: ACUTE PROMYELOCYTIC LEUKAEMIA
     Route: 048

REACTIONS (3)
  - Pancytopenia [None]
  - Caesarean section [None]
  - Exposure during pregnancy [Recovered/Resolved]
